FAERS Safety Report 4886964-0 (Version None)
Quarter: 2006Q1

REPORT INFORMATION
  Report Type: 
  Country: None (occurrence: None)
  Receive Date: 20060118
  Receipt Date: 20060110
  Transmission Date: 20060701
  Serious: Yes (Death)
  Sender: FDA-Public Use
  Company Number: CERZ-11066

PATIENT
  Age: 72 Year
  Sex: Female
  Weight: 72.5755 kg

DRUGS (4)
  1. CEREZYME [Suspect]
     Indication: GAUCHER'S DISEASE
     Dosage: 8000 UNITS Q4WKS IV
     Route: 042
     Dates: start: 19941017, end: 20051028
  2. NEXIUM [Concomitant]
  3. FOSAMAX [Concomitant]
  4. SYNTHROID [Concomitant]

REACTIONS (2)
  - GENERAL PHYSICAL HEALTH DETERIORATION [None]
  - MYELODYSPLASTIC SYNDROME [None]
